FAERS Safety Report 24580764 (Version 3)
Quarter: 2025Q2

REPORT INFORMATION
  Report Type: Spontaneous
  Country: CN (occurrence: CN)
  Receive Date: 20241105
  Receipt Date: 20250522
  Transmission Date: 20250716
  Serious: Yes (Other)
  Sender: PFIZER
  Company Number: CN-PFIZER INC-PV202400142649

PATIENT
  Age: 54 Year
  Sex: Male

DRUGS (5)
  1. TOFACITINIB CITRATE [Suspect]
     Active Substance: TOFACITINIB CITRATE
     Indication: Neurodermatitis
     Dosage: 5 MG, DAILY
     Route: 048
     Dates: start: 2018
  2. TOFACITINIB CITRATE [Suspect]
     Active Substance: TOFACITINIB CITRATE
     Indication: Rheumatoid arthritis
  3. METHYLPREDNISOLONE [Concomitant]
     Active Substance: METHYLPREDNISOLONE
     Dosage: 500 MG DAILY FOR 3 DAYS
     Route: 042
  4. METHYLPREDNISOLONE [Concomitant]
     Active Substance: METHYLPREDNISOLONE
     Dosage: 60MG DAILY
  5. DUPILUMAB [Concomitant]
     Active Substance: DUPILUMAB

REACTIONS (2)
  - Demyelination [Recovered/Resolved]
  - Pemphigoid [Not Recovered/Not Resolved]
